FAERS Safety Report 15439996 (Version 1)
Quarter: 2018Q3

REPORT INFORMATION
  Report Type: Spontaneous
  Country: US (occurrence: US)
  Receive Date: 20180925
  Receipt Date: 20180925
  Transmission Date: 20181010
  Serious: Yes (Hospitalization, Disabling)
  Sender: FDA-Public Use
  Company Number: None

PATIENT
  Age: 33 Year
  Sex: Female
  Weight: 81 kg

DRUGS (2)
  1. LAMOTRIGINE GENERIC FOR LAMICTAL [Suspect]
     Active Substance: LAMOTRIGINE
     Indication: BIPOLAR DISORDER
     Dosage: ?          QUANTITY:1 TABLET(S);?
     Route: 048
     Dates: start: 20180812, end: 20180924
  2. MELATONIN 10MG [Concomitant]

REACTIONS (15)
  - Vision blurred [None]
  - Decreased appetite [None]
  - Product substitution issue [None]
  - Malaise [None]
  - Dizziness [None]
  - Photophobia [None]
  - Hyperacusis [None]
  - Depression [None]
  - Catatonia [None]
  - Feeling abnormal [None]
  - Visual field defect [None]
  - Hyperaesthesia [None]
  - Anxiety [None]
  - Nausea [None]
  - Headache [None]

NARRATIVE: CASE EVENT DATE: 20180812
